FAERS Safety Report 15433545 (Version 1)
Quarter: 2018Q3

REPORT INFORMATION
  Report Type: Spontaneous
  Country: US (occurrence: US)
  Receive Date: 20180922
  Receipt Date: 20180922
  Transmission Date: 20181010
  Serious: Yes (Disabling)
  Sender: FDA-Public Use
  Company Number: None

PATIENT
  Age: 27 Year
  Sex: Female
  Weight: 72 kg

DRUGS (6)
  1. DEPO?PROVERA [Suspect]
     Active Substance: MEDROXYPROGESTERONE ACETATE
     Indication: MENORRHAGIA
     Dates: start: 20090801, end: 20160901
  2. ECHINACEA [Concomitant]
     Active Substance: ECHINACEA, UNSPECIFIED
  3. ASHWAGANDHA [Concomitant]
     Active Substance: HERBALS
  4. VITAMIN C [Concomitant]
     Active Substance: ASCORBIC ACID
  5. DEPO?PROVERA [Suspect]
     Active Substance: MEDROXYPROGESTERONE ACETATE
     Indication: CONTRACEPTION
     Dates: start: 20090801, end: 20160901
  6. OIL OF OREGANO [Concomitant]

REACTIONS (7)
  - Muscular weakness [None]
  - Mood swings [None]
  - Weight increased [None]
  - Fatigue [None]
  - Lethargy [None]
  - Alopecia [None]
  - Affect lability [None]

NARRATIVE: CASE EVENT DATE: 20110101
